FAERS Safety Report 9914760 (Version 2)
Quarter: 2014Q1

REPORT INFORMATION
  Report Type: Report from Study
  Country: CA (occurrence: CA)
  Receive Date: 20140220
  Receipt Date: 20140220
  Transmission Date: 20141002
  Serious: Yes (Hospitalization)
  Sender: FDA-Public Use
  Company Number: CA-009507513-1201USA00969

PATIENT
  Age: 54 Year
  Sex: Female
  Weight: 77.56 kg

DRUGS (16)
  1. EZETROL [Suspect]
     Dosage: 10 MG, QD
     Route: 065
  2. ALVESCO [Suspect]
     Dosage: 400 MICROGRAM
     Route: 065
  3. ATENOLOL [Suspect]
     Dosage: 50 MG, QD
     Route: 065
  4. CRESTOR [Suspect]
     Dosage: 20 MG, QD
     Route: 065
  5. DETROL LA [Suspect]
     Dosage: 4.0 MG, QD
     Route: 065
  6. DOMPERIDONE [Suspect]
     Dosage: 10 MG, BID
     Route: 065
  7. ECOTRIN [Suspect]
     Dosage: UNK UNK, QD
     Route: 065
  8. IMIPRAMINE HYDROCHLORIDE [Suspect]
     Dosage: 25.0 MG, BID
     Route: 065
  9. MAVIK [Suspect]
     Dosage: 2.0 MG, QD
     Route: 065
  10. PANTOPRAZOLE [Suspect]
     Dosage: 40.0 MG, QD
     Route: 065
  11. PLAVIX [Suspect]
     Dosage: 75.0 MG, QD
     Route: 065
  12. SINGULAIR [Concomitant]
     Route: 065
  13. STELARA [Suspect]
     Route: 065
  14. SULCRATE [Suspect]
     Dosage: 1000.0 MG, BID
     Route: 065
  15. MACROBID (CLARITHROMYCIN) [Suspect]
     Dosage: 100.0 MG, QD
     Route: 065
  16. AERIUS [Suspect]
     Dosage: 5.0 MG, QD
     Route: 048

REACTIONS (3)
  - Hallucination, auditory [Recovered/Resolved]
  - Paranoia [Recovered/Resolved]
  - Psychotic disorder [Recovered/Resolved]
